FAERS Safety Report 22045236 (Version 1)
Quarter: 2023Q1

REPORT INFORMATION
  Report Type: Spontaneous
  Country: US (occurrence: None)
  Receive Date: 20230227
  Receipt Date: 20230227
  Transmission Date: 20230418
  Serious: Yes (Other)
  Sender: FDA-Public Use
  Company Number: None

PATIENT
  Age: 60 Year
  Sex: Male
  Weight: 90 kg

DRUGS (21)
  1. SIMPONI ARIA [Suspect]
     Active Substance: GOLIMUMAB
     Indication: Rheumatoid arthritis
     Dosage: OTHER FREQUENCY : EVERY TWO MONTHS;?
     Route: 042
     Dates: start: 20171201, end: 20221020
  2. AMLODIPINE [Concomitant]
     Active Substance: AMLODIPINE BESYLATE
  3. LISINOPRIL [Concomitant]
     Active Substance: LISINOPRIL
  4. levthyroxin [Concomitant]
  5. GABAPENTIN [Concomitant]
     Active Substance: GABAPENTIN
  6. SULFASALAZINE [Concomitant]
     Active Substance: SULFASALAZINE
  7. TESTOSTERONE [Concomitant]
     Active Substance: TESTOSTERONE
  8. b12 injection [Concomitant]
  9. DEVICE [Concomitant]
     Active Substance: DEVICE
  10. intrathecal pump (morphine) [Concomitant]
  11. SIMPONI ARIA [Concomitant]
     Active Substance: GOLIMUMAB
  12. MIRALAX [Concomitant]
     Active Substance: POLYETHYLENE GLYCOL 3350
  13. stool softners [Concomitant]
  14. CHONDROITIN SULFATE (BOVINE)\GLUCOSAMINE HYDROCHLORIDE [Concomitant]
     Active Substance: CHONDROITIN SULFATE (BOVINE)\GLUCOSAMINE HYDROCHLORIDE
  15. VITAMIN D3 [Concomitant]
     Active Substance: CHOLECALCIFEROL
  16. HERBALS\TURMERIC [Concomitant]
     Active Substance: HERBALS\TURMERIC
  17. FISH OIL [Concomitant]
     Active Substance: FISH OIL
  18. COENZYME Q10 [Concomitant]
     Active Substance: DIETARY SUPPLEMENT\UBIDECARENONE
  19. guaifsensin [Concomitant]
  20. ALPHA LIPOIC ACID [Concomitant]
     Active Substance: .ALPHA.-LIPOIC ACID
  21. VITAMINS [Concomitant]
     Active Substance: VITAMINS

REACTIONS (7)
  - Infusion related reaction [None]
  - Swelling face [None]
  - Peripheral swelling [None]
  - Erythema [None]
  - Urticaria [None]
  - Pruritus [None]
  - Respiratory disorder [None]

NARRATIVE: CASE EVENT DATE: 20221020
